FAERS Safety Report 9353101 (Version 1)
Quarter: 2013Q2

REPORT INFORMATION
  Report Type: Spontaneous
  Country: US (occurrence: None)
  Receive Date: 20130617
  Receipt Date: 20130617
  Transmission Date: 20140414
  Serious: Yes (Other)
  Sender: FDA-Public Use
  Company Number: None

PATIENT
  Age: 58 Year
  Sex: Female
  Weight: 62.14 kg

DRUGS (2)
  1. ESTRING [Suspect]
     Indication: ATROPHIC VULVOVAGINITIS
     Dosage: ESTRING 2 MG 3 MOS VAGINAL INSERTION
     Route: 067
     Dates: start: 2010, end: 201206
  2. ESTRING [Suspect]
     Indication: DYSPAREUNIA
     Dosage: ESTRING 2 MG 3 MOS VAGINAL INSERTION
     Route: 067
     Dates: start: 2010, end: 201206

REACTIONS (2)
  - Coital bleeding [None]
  - Uterine cervical erosion [None]
